FAERS Safety Report 9297739 (Version 1)
Quarter: 2013Q2

REPORT INFORMATION
  Report Type: Spontaneous
  Country: US (occurrence: None)
  Receive Date: 20130517
  Receipt Date: 20130517
  Transmission Date: 20140414
  Serious: Yes (Hospitalization)
  Sender: FDA-Public Use
  Company Number: None

PATIENT
  Age: 23 Year
  Sex: Male

DRUGS (1)
  1. 5-DECA-ZOL [Suspect]
     Dates: start: 20110701, end: 20110815

REACTIONS (7)
  - Drug-induced liver injury [None]
  - Cholestasis [None]
  - Pyrexia [None]
  - Nausea [None]
  - Vomiting [None]
  - Abdominal pain [None]
  - Headache [None]
